FAERS Safety Report 17001077 (Version 1)
Quarter: 2019Q4

REPORT INFORMATION
  Report Type: Spontaneous
  Country: US (occurrence: US)
  Receive Date: 20191106
  Receipt Date: 20191106
  Transmission Date: 20200122
  Serious: No
  Sender: FDA-Public Use
  Company Number: US-B.I. PHARMACEUTICALS,INC./RIDGEFIELD-2019-US-110974

PATIENT
  Sex: Male

DRUGS (1)
  1. TRADJENTA [Suspect]
     Active Substance: LINAGLIPTIN
     Indication: PRODUCT USED FOR UNKNOWN INDICATION
     Dosage: 2 DOSAGE FORMS
     Route: 065

REACTIONS (5)
  - Confusional state [Unknown]
  - Prescribed overdose [Unknown]
  - Blood glucose abnormal [Unknown]
  - Hyperhidrosis [Unknown]
  - Nervousness [Unknown]
